FAERS Safety Report 8145471-2 (Version None)
Quarter: 2012Q1

REPORT INFORMATION
  Report Type: 
  Country: None (occurrence: None)
  Receive Date: 20120217
  Receipt Date: 20120216
  Transmission Date: 20120608
  Serious: Yes (Other)
  Sender: FDA-Public Use
  Company Number: US-PFIZER INC-2012042369

PATIENT
  Sex: Female
  Weight: 66.667 kg

DRUGS (4)
  1. MULTI-VITAMINS [Concomitant]
     Dosage: UNK
  2. CELEBREX [Suspect]
     Dosage: 100 MG, 2X/DAY
     Dates: start: 20120207, end: 20120215
  3. SINGULAIR [Concomitant]
     Indication: ASTHMA
     Dosage: 10 MG, DAILY
     Dates: start: 20110101
  4. CELEBREX [Suspect]
     Indication: MULTIPLE INJURIES
     Dosage: 100 MG, DAILY
     Dates: start: 20120206

REACTIONS (5)
  - OEDEMA PERIPHERAL [None]
  - DIARRHOEA [None]
  - VOMITING [None]
  - ABDOMINAL PAIN [None]
  - LIVER DISORDER [None]
